FAERS Safety Report 6961127-3 (Version None)
Quarter: 2010Q3

REPORT INFORMATION
  Report Type: 
  Country: None (occurrence: None)
  Receive Date: 20100823
  Receipt Date: 20100705
  Transmission Date: 20110219
  Serious: No
  Sender: FDA-Public Use
  Company Number: 015084

PATIENT
  Age: 32 Year
  Sex: Female

DRUGS (4)
  1. CIMZIA [Suspect]
     Dosage: SUBCUTANEOUS
     Route: 058
     Dates: start: 20100301
  2. PREDNISONE [Concomitant]
  3. HUMULIN R [Concomitant]
  4. ATASOL [Concomitant]

REACTIONS (1)
  - SKIN DISCOLOURATION [None]
